FAERS Safety Report 7892895 (Version 6)
Quarter: 2016Q2

REPORT INFORMATION
  Report Type: Report from Study
  Country: IT (occurrence: IT)
  Receive Date: 20110411
  Receipt Date: 20160511
  Transmission Date: 20160815
  Serious: Yes (Hospitalization)
  Sender: FDA-Public Use
  Company Number: PHHO2011IT05477

PATIENT
  Age: 77 Year
  Sex: Male
  Weight: 60 kg

DRUGS (5)
  1. ALISKIREN [Suspect]
     Active Substance: ALISKIREN
     Indication: CARDIAC FAILURE
     Dosage: 150 MG (RUN IN PHASE)
     Route: 048
     Dates: start: 20100702, end: 20100730
  2. COMPARATOR ENALAPRIL [Suspect]
     Active Substance: ENALAPRIL
     Indication: CARDIAC FAILURE
     Dosage: 10 MG, BID  (RUN IN PHASE)
     Route: 048
     Dates: start: 20100716, end: 20100729
  3. WARFARIN [Suspect]
     Active Substance: WARFARIN
  4. ALISKIREN [Suspect]
     Active Substance: ALISKIREN
     Dosage: 300 MG, UNK
     Route: 048
     Dates: start: 20100825, end: 20110325
  5. COMPARATOR ENALAPRIL [Suspect]
     Active Substance: ENALAPRIL
     Dosage: 5 MG, BID  (RUN IN PHASE)
     Route: 048
     Dates: start: 20100730, end: 20100825

REACTIONS (2)
  - Acute pulmonary oedema [Recovered/Resolved]
  - Concomitant disease progression [Recovered/Resolved]

NARRATIVE: CASE EVENT DATE: 20110326
